FAERS Safety Report 4618054-6 (Version None)
Quarter: 2005Q1

REPORT INFORMATION
  Report Type: 
  Country: None (occurrence: None)
  Receive Date: 20050322
  Receipt Date: 20050309
  Transmission Date: 20050727
  Serious: Yes (Life-Threatening, Hospitalization)
  Sender: FDA-Public Use
  Company Number: 2005043255

PATIENT
  Age: 28 Year
  Sex: Female

DRUGS (1)
  1. DINOPROSTONE (DINOPROSTONE) [Suspect]
     Indication: LABOUR INDUCTION
     Dates: start: 20041206, end: 20041206

REACTIONS (9)
  - CAESAREAN SECTION [None]
  - DISSEMINATED INTRAVASCULAR COAGULATION [None]
  - DRUG EXPOSURE DURING PREGNANCY [None]
  - FACIAL PARESIS [None]
  - FIBRINOLYSIS [None]
  - HYPOTENSION [None]
  - MONOPARESIS [None]
  - UTERINE HAEMORRHAGE [None]
  - UTERINE HYPERTONUS [None]
